FAERS Safety Report 7086465-8 (Version None)
Quarter: 2010Q4

REPORT INFORMATION
  Report Type: 
  Country: None (occurrence: None)
  Receive Date: 20101105
  Receipt Date: 20101028
  Transmission Date: 20110411
  Serious: Yes (Hospitalization)
  Sender: FDA-Public Use
  Company Number: FR-EISAI INC.-E3810-04201-SPO-FR

PATIENT
  Sex: Male
  Weight: 85 kg

DRUGS (6)
  1. PARIET (RABEPRAZOLE) [Suspect]
     Route: 048
  2. VELCADE [Suspect]
     Indication: MULTIPLE MYELOMA
     Route: 041
     Dates: start: 20100427, end: 20100930
  3. DEXAMETHASONE [Suspect]
     Indication: MULTIPLE MYELOMA
     Route: 041
     Dates: start: 20100428, end: 20100901
  4. VALACYCLOVIR HYDROCHLORIDE [Concomitant]
     Route: 048
     Dates: start: 20100601
  5. AMITRIPTYLINE HCL [Concomitant]
     Indication: DEPRESSION
     Route: 048
     Dates: start: 20100601
  6. LACTULOSE [Concomitant]
     Indication: CONSTIPATION
     Route: 048
     Dates: start: 20100801

REACTIONS (5)
  - ABDOMINAL PAIN [None]
  - HYPOTENSION [None]
  - MALAISE [None]
  - OESOPHAGITIS [None]
  - OESOPHAGITIS ULCERATIVE [None]
